FAERS Safety Report 10441626 (Version 2)
Quarter: 2014Q3

REPORT INFORMATION
  Report Type: Spontaneous
  Country: US (occurrence: US)
  Receive Date: 20140908
  Receipt Date: 20140908
  Transmission Date: 20150326
  Serious: Yes (Hospitalization)
  Sender: FDA-Public Use
  Company Number: US-SUCAMPO AG-SPI201400562

PATIENT
  Sex: Female

DRUGS (1)
  1. AMITIZA [Suspect]
     Active Substance: LUBIPROSTONE
     Indication: CONSTIPATION
     Route: 048

REACTIONS (3)
  - Abdominal distension [Unknown]
  - Brain neoplasm malignant [Unknown]
  - Flatulence [Unknown]

NARRATIVE: CASE EVENT DATE: 201408
